FAERS Safety Report 10472146 (Version 1)
Quarter: 2014Q3

REPORT INFORMATION
  Report Type: Spontaneous
  Country: US (occurrence: None)
  Receive Date: 20140923
  Receipt Date: 20140923
  Transmission Date: 20150326
  Serious: No
  Sender: FDA-Public Use
  Company Number: None

PATIENT
  Age: 59 Year
  Sex: Female
  Weight: 120.2 kg

DRUGS (1)
  1. LEVOFLOXIN 750MG [Suspect]
     Active Substance: LEVOFLOXACIN
     Dosage: 1 PILL DAILY
     Route: 048
     Dates: start: 20140825, end: 20140829

REACTIONS (4)
  - Arthralgia [None]
  - Musculoskeletal pain [None]
  - Pain in extremity [None]
  - Orthosis user [None]

NARRATIVE: CASE EVENT DATE: 20140825
